FAERS Safety Report 10279737 (Version 1)
Quarter: 2014Q3

REPORT INFORMATION
  Report Type: Report from Study
  Country: CA (occurrence: None)
  Receive Date: 20140702
  Receipt Date: 20140702
  Transmission Date: 20150326
  Serious: Yes (Hospitalization)
  Sender: FDA-Public Use
  Company Number: AUR-APL-2014-06863

PATIENT
  Age: 68 Year
  Sex: Female

DRUGS (18)
  1. LYRICA [Suspect]
     Active Substance: PREGABALIN
     Indication: PRODUCT USED FOR UNKNOWN INDICATION
     Dosage: TWO TIMES A DAY
  2. LASIX [Suspect]
     Active Substance: FUROSEMIDE
     Indication: PRODUCT USED FOR UNKNOWN INDICATION
     Dosage: ONCE A DAY
  3. LANTUS [Concomitant]
     Active Substance: INSULIN GLARGINE
  4. METFORMIN [Concomitant]
     Active Substance: METFORMIN HYDROCHLORIDE
  5. PANTOPRAZOLE [Concomitant]
     Active Substance: PANTOPRAZOLE SODIUM
  6. CITALOPRAM [Suspect]
     Active Substance: CITALOPRAM HYDROBROMIDE
     Indication: PRODUCT USED FOR UNKNOWN INDICATION
  7. RAMIPRIL (RAMIPRIL) UNKNOWN, UNKNOWN [Suspect]
     Active Substance: RAMIPRIL
     Indication: PRODUCT USED FOR UNKNOWN INDICATION
  8. ATORVASTATIN (ATORVASTATIN) TABLET [Concomitant]
     Active Substance: ATORVASTATIN
  9. FENOFIBRATE. [Concomitant]
     Active Substance: FENOFIBRATE
  10. METOPROLOL [Concomitant]
     Active Substance: METOPROLOL
  11. PERINDOPRIL [Concomitant]
     Active Substance: PERINDOPRIL
  12. SALBUTAMOL [Concomitant]
     Active Substance: ALBUTEROL
  13. CELEBREX [Suspect]
     Active Substance: CELECOXIB
     Indication: PRODUCT USED FOR UNKNOWN INDICATION
  14. INSULIN (INSULIN) [Suspect]
     Active Substance: INSULIN NOS
     Indication: PRODUCT USED FOR UNKNOWN INDICATION
  15. BISOPROLOL [Concomitant]
     Active Substance: BISOPROLOL
  16. RABEPRAZOLE [Concomitant]
     Active Substance: RABEPRAZOLE
  17. ACETAMINOPHEN (PARACETAMOL) [Concomitant]
     Active Substance: ACETAMINOPHEN
  18. OXYCONTIN(OXYCODONE HYDROCHLORIDE) [Concomitant]

REACTIONS (13)
  - Renal failure [None]
  - Condition aggravated [None]
  - Nervous system disorder [None]
  - Depression [None]
  - Dyskinesia [None]
  - Hypotension [None]
  - Muscular weakness [None]
  - Cognitive disorder [None]
  - Diabetes mellitus inadequate control [None]
  - Encephalopathy [None]
  - Dysarthria [None]
  - Tremor [None]
  - Myoclonus [None]
